FAERS Safety Report 11616903 (Version 1)
Quarter: 2015Q4

REPORT INFORMATION
  Report Type: Spontaneous
  Country: US (occurrence: US)
  Receive Date: 20151009
  Receipt Date: 20151009
  Transmission Date: 20160304
  Serious: No
  Sender: FDA-Public Use
  Company Number: US-PFIZER INC-2015325429

PATIENT
  Age: 51 Year
  Sex: Male
  Weight: 100 kg

DRUGS (2)
  1. ADVIL [Suspect]
     Active Substance: IBUPROFEN
     Indication: BACK PAIN
  2. ADVIL [Suspect]
     Active Substance: IBUPROFEN
     Indication: ARTHRALGIA
     Dosage: 1600 MG, WITHIN THIS LAST HOUR

REACTIONS (5)
  - Throat tightness [Recovering/Resolving]
  - Intentional overdose [Unknown]
  - Retching [Unknown]
  - Polydipsia [Unknown]
  - Dry throat [Unknown]
